FAERS Safety Report 21868114 (Version 2)
Quarter: 2023Q1

REPORT INFORMATION
  Report Type: Report from Study
  Country: US (occurrence: US)
  Receive Date: 20230116
  Receipt Date: 20230208
  Transmission Date: 20230417
  Serious: Yes (Hospitalization)
  Sender: FDA-Public Use
  Company Number: US-ABBVIE-4270382

PATIENT
  Age: 91 Year
  Sex: Female

DRUGS (3)
  1. IMBRUVICA [Suspect]
     Active Substance: IBRUTINIB
     Indication: Extranodal marginal zone B-cell lymphoma (MALT type)
     Route: 048
     Dates: start: 20200817
  2. IMBRUVICA [Suspect]
     Active Substance: IBRUTINIB
     Indication: Extranodal marginal zone B-cell lymphoma (MALT type)
     Route: 048
     Dates: start: 20221128, end: 202301
  3. IMBRUVICA [Suspect]
     Active Substance: IBRUTINIB
     Indication: Extranodal marginal zone B-cell lymphoma (MALT type)
     Route: 048

REACTIONS (7)
  - Spinal operation [Unknown]
  - Fall [Unknown]
  - Diarrhoea [Unknown]
  - Mouth haemorrhage [Recovered/Resolved]
  - Constipation [Unknown]
  - Head injury [Unknown]
  - Protein total decreased [Unknown]

NARRATIVE: CASE EVENT DATE: 20221101
